FAERS Safety Report 15884187 (Version 8)
Quarter: 2024Q2

REPORT INFORMATION
  Report Type: Spontaneous
  Country: PL (occurrence: PL)
  Receive Date: 20190129
  Receipt Date: 20240410
  Transmission Date: 20240716
  Serious: Yes (Death, Life-Threatening, Hospitalization, Other)
  Sender: FDA-Public Use
  Company Number: None

PATIENT
  Age: 31 Year
  Sex: Male

DRUGS (32)
  1. VELCADE [Suspect]
     Active Substance: BORTEZOMIB
     Indication: Cholestasis
     Dosage: 1.25 MILLIGRAM/SQ. METER, QD
     Route: 042
     Dates: start: 2014
  2. VELCADE [Suspect]
     Active Substance: BORTEZOMIB
     Indication: Transplant rejection
  3. MESALAMINE [Suspect]
     Active Substance: MESALAMINE
     Indication: Colitis ulcerative
     Dosage: UNK
     Route: 065
     Dates: start: 2015
  4. MYCOPHENOLATE MOFETIL [Suspect]
     Active Substance: MYCOPHENOLATE MOFETIL
     Indication: Transplant rejection
     Dosage: UNK
     Route: 065
     Dates: start: 201411
  5. MYCOPHENOLATE MOFETIL [Suspect]
     Active Substance: MYCOPHENOLATE MOFETIL
     Indication: Immunosuppressant drug therapy
     Dosage: UNK
     Route: 065
     Dates: start: 2015, end: 2015
  6. MYCOPHENOLATE MOFETIL [Suspect]
     Active Substance: MYCOPHENOLATE MOFETIL
     Indication: Liver transplant
     Dosage: 3 GRAM, QD
     Route: 065
     Dates: start: 2015, end: 2015
  7. METHYLPREDNISOLONE [Suspect]
     Active Substance: METHYLPREDNISOLONE
     Indication: Immunosuppressant drug therapy
     Dosage: 2750 MILLIGRAM
     Route: 041
     Dates: start: 201411
  8. METHYLPREDNISOLONE [Suspect]
     Active Substance: METHYLPREDNISOLONE
     Indication: Transplant rejection
     Dosage: 40 MILLIGRAM, QD
     Route: 041
     Dates: start: 2015
  9. METHYLPREDNISOLONE [Suspect]
     Active Substance: METHYLPREDNISOLONE
     Indication: Liver transplant
     Dosage: 120 MILLIGRAM
     Route: 041
     Dates: start: 2015, end: 2015
  10. PREDNISONE [Suspect]
     Active Substance: PREDNISONE
     Indication: Immunosuppressant drug therapy
     Dosage: UNK
     Route: 065
     Dates: start: 201411
  11. PREDNISONE [Suspect]
     Active Substance: PREDNISONE
     Indication: Transplant rejection
     Dosage: 30 MILLIGRAM
     Route: 065
     Dates: start: 201411, end: 20150101
  12. PREDNISONE [Suspect]
     Active Substance: PREDNISONE
     Indication: Liver transplant
  13. THYMOCYTE IMMUNE GLOBULIN NOS [Suspect]
     Active Substance: THYMOCYTE IMMUNE GLOBULIN NOS
     Indication: Transplant rejection
     Dosage: 800 MILLIGRAM
     Route: 065
     Dates: start: 201411, end: 2014
  14. THYMOCYTE IMMUNE GLOBULIN NOS [Suspect]
     Active Substance: THYMOCYTE IMMUNE GLOBULIN NOS
     Indication: Liver function test abnormal
     Dosage: UNK
     Route: 065
  15. THYMOCYTE IMMUNE GLOBULIN NOS [Suspect]
     Active Substance: THYMOCYTE IMMUNE GLOBULIN NOS
     Indication: Liver transplant
     Dosage: UNK
     Route: 065
  16. THYMOCYTE IMMUNE GLOBULIN NOS [Suspect]
     Active Substance: THYMOCYTE IMMUNE GLOBULIN NOS
     Indication: Transplant rejection
  17. THYMOCYTE IMMUNE GLOBULIN NOS [Suspect]
     Active Substance: THYMOCYTE IMMUNE GLOBULIN NOS
     Indication: Liver function test abnormal
  18. TACROLIMUS [Suspect]
     Active Substance: TACROLIMUS
     Indication: Immunosuppressant drug therapy
     Dosage: UNK
     Route: 065
     Dates: start: 201411
  19. TACROLIMUS [Suspect]
     Active Substance: TACROLIMUS
     Indication: Transplant rejection
     Dosage: UNK
     Route: 065
     Dates: start: 2015, end: 2015
  20. TACROLIMUS [Suspect]
     Active Substance: TACROLIMUS
     Indication: Liver transplant
  21. SULFAMETHOXAZOLE AND TRIMETHOPRIM [Suspect]
     Active Substance: SULFAMETHOXAZOLE\TRIMETHOPRIM
     Indication: Pneumocystis jirovecii infection
     Dosage: 1440 MILLIGRAM
     Route: 065
  22. BACTRIM [Suspect]
     Active Substance: SULFAMETHOXAZOLE\TRIMETHOPRIM
     Indication: Pneumocystis jirovecii infection
     Dosage: 1440 MILLIGRAM
     Route: 065
  23. GANCICLOVIR [Concomitant]
     Active Substance: GANCICLOVIR
     Indication: Antiviral prophylaxis
     Dosage: UNK
     Route: 065
  24. GANCICLOVIR [Concomitant]
     Active Substance: GANCICLOVIR
     Dosage: UNK
     Route: 065
  25. VALGANCICLOVIR [Concomitant]
     Active Substance: VALGANCICLOVIR
     Indication: Antiviral prophylaxis
     Dosage: 450 MILLIGRAM, QD
     Route: 065
  26. COLISTIN [Concomitant]
     Active Substance: COLISTIN
     Indication: Pneumocystis jirovecii infection
     Dosage: UNK
     Route: 055
  27. COLISTIN [Concomitant]
     Active Substance: COLISTIN
     Dosage: UNK
     Route: 042
  28. MEROPENEM [Concomitant]
     Active Substance: MEROPENEM
     Indication: Superinfection bacterial
     Dosage: UNK
     Route: 065
  29. MEROPENEM [Concomitant]
     Active Substance: MEROPENEM
     Route: 065
  30. LINEZOLID [Concomitant]
     Active Substance: LINEZOLID
     Indication: Pneumocystis jirovecii infection
     Dosage: 300 MILLIGRAM, BID
     Route: 065
  31. LINEZOLID [Concomitant]
     Active Substance: LINEZOLID
     Indication: Pneumocystis jirovecii infection
     Route: 065
  32. COLISTIN [Concomitant]
     Active Substance: COLISTIN
     Indication: Pneumocystis jirovecii infection
     Dosage: UNK
     Route: 055

REACTIONS (21)
  - Cytomegalovirus infection [Fatal]
  - Pneumocystis jirovecii infection [Fatal]
  - Tachypnoea [Fatal]
  - Pulmonary fibrosis [Fatal]
  - Interstitial lung disease [Fatal]
  - Respiratory distress [Fatal]
  - Neutropenia [Fatal]
  - Cough [Fatal]
  - Influenza like illness [Recovering/Resolving]
  - Liver transplant rejection [Recovered/Resolved]
  - Hypogammaglobulinaemia [Recovering/Resolving]
  - Leukocytosis [Recovering/Resolving]
  - Superinfection bacterial [Unknown]
  - Pancytopenia [Not Recovered/Not Resolved]
  - Liver function test abnormal [Recovering/Resolving]
  - Upper respiratory tract infection [Unknown]
  - Thrombocytopenia [Recovering/Resolving]
  - Pyrexia [Recovering/Resolving]
  - Drug ineffective [Unknown]
  - Product use in unapproved indication [Unknown]
  - Off label use [Unknown]

NARRATIVE: CASE EVENT DATE: 20140101
